FAERS Safety Report 6619878-6 (Version None)
Quarter: 2010Q1

REPORT INFORMATION
  Report Type: 
  Country: None (occurrence: None)
  Receive Date: 20100309
  Receipt Date: 20100303
  Transmission Date: 20100710
  Serious: Yes (Death)
  Sender: FDA-Public Use
  Company Number: DE-CELGENEUS-062-21880-10010089

PATIENT
  Age: 52 Year
  Sex: Male

DRUGS (9)
  1. REVLIMID [Suspect]
     Indication: MULTIPLE MYELOMA
     Route: 048
     Dates: start: 20091125, end: 20091215
  2. CLEXANE [Concomitant]
     Indication: THROMBOSIS PROPHYLAXIS
     Route: 058
     Dates: start: 20091125
  3. CODIOVAN [Concomitant]
     Dosage: 80MG / 12.5MG
     Route: 048
  4. EUTHYROX [Concomitant]
     Indication: HYPERTHYROIDISM
     Route: 048
  5. PANTOZOL [Concomitant]
     Route: 048
  6. NOVALGIN [Concomitant]
     Indication: PAIN
     Route: 048
     Dates: start: 20090601
  7. VALORAN [Concomitant]
     Indication: DRUG USE FOR UNKNOWN INDICATION
     Route: 048
  8. LYRICA [Concomitant]
     Indication: DRUG USE FOR UNKNOWN INDICATION
     Route: 048
  9. DEXAMETHASONE [Concomitant]
     Indication: MULTIPLE MYELOMA
     Route: 065
     Dates: start: 20091101, end: 20091101

REACTIONS (4)
  - ACUTE MYOCARDIAL INFARCTION [None]
  - CORONARY ARTERY DISEASE [None]
  - HAEMOGLOBIN DECREASED [None]
  - VENTRICULAR FIBRILLATION [None]
